FAERS Safety Report 5335104-2 (Version None)
Quarter: 2007Q2

REPORT INFORMATION
  Report Type: 
  Country: None (occurrence: None)
  Receive Date: 20070525
  Receipt Date: 20070516
  Transmission Date: 20071010
  Serious: Yes (Hospitalization, Other)
  Sender: FDA-Public Use
  Company Number: CZ-ABBOTT-07P-217-0362353-00

PATIENT
  Sex: Male
  Weight: 85 kg

DRUGS (4)
  1. HUMIRA [Suspect]
     Indication: ANKYLOSING SPONDYLITIS
     Route: 058
     Dates: start: 20060328, end: 20070103
  2. HUMIRA [Suspect]
     Route: 058
     Dates: start: 20070228
  3. CIPRALEX [Concomitant]
     Indication: ANTIDEPRESSANT THERAPY
  4. CITALEC [Concomitant]
     Indication: DEPRESSION
     Route: 048

REACTIONS (8)
  - AGORAPHOBIA [None]
  - CHEST PAIN [None]
  - COUGH [None]
  - DEPRESSION [None]
  - FEELING COLD [None]
  - LUNG DISORDER [None]
  - PANIC DISORDER [None]
  - PNEUMOTHORAX [None]
